FAERS Safety Report 25151254 (Version 2)
Quarter: 2025Q2

REPORT INFORMATION
  Report Type: Spontaneous
  Country: CN (occurrence: CN)
  Receive Date: 20250402
  Receipt Date: 20250404
  Transmission Date: 20250717
  Serious: Yes (Hospitalization, Other)
  Sender: DAIICHI
  Company Number: CN-DSJP-DS-2025-132287-CN

PATIENT
  Age: 98 Year
  Sex: Male
  Weight: 80 kg

DRUGS (3)
  1. EDOXABAN TOSYLATE [Suspect]
     Active Substance: EDOXABAN TOSYLATE
     Indication: Symptomatic treatment
     Dosage: 15 MG, QD (TUBE FEEDING)
     Dates: start: 20240715, end: 20250218
  2. EDOXABAN TOSYLATE [Suspect]
     Active Substance: EDOXABAN TOSYLATE
     Indication: Anticoagulant therapy
  3. EDOXABAN TOSYLATE [Suspect]
     Active Substance: EDOXABAN TOSYLATE
     Indication: Thrombosis prophylaxis

REACTIONS (5)
  - Respiratory failure [Unknown]
  - Pneumonia [Unknown]
  - Subcutaneous haematoma [Recovering/Resolving]
  - Ecchymosis [Recovering/Resolving]
  - Anaemia [Unknown]

NARRATIVE: CASE EVENT DATE: 20250217
